FAERS Safety Report 10694805 (Version 1)
Quarter: 2015Q1

REPORT INFORMATION
  Report Type: Spontaneous
  Country: US (occurrence: None)
  Receive Date: 20150105
  Receipt Date: 20150105
  Transmission Date: 20150721
  Serious: Yes (Other)
  Sender: FDA-Public Use
  Company Number: None

PATIENT
  Age: 70 Year
  Sex: Female
  Weight: 63.5 kg

DRUGS (5)
  1. OCUVITE [Concomitant]
     Active Substance: VITAMINS
  2. OMEPRAZOLE. [Concomitant]
     Active Substance: OMEPRAZOLE
  3. LISINOPRIL. [Concomitant]
     Active Substance: LISINOPRIL
  4. TRAMADOL HCL [Suspect]
     Active Substance: TRAMADOL HYDROCHLORIDE
     Indication: TOOTH EXTRACTION
     Dosage: 50 MG, 1 PILL PER 4 HRS, 1 PILL AS NEEDED EVERY 4-6 HRS, SWALLOWED WITH WATER
     Dates: start: 20141203, end: 20141205
  5. CALCIUM CITRATE + D [Concomitant]

REACTIONS (3)
  - Somnambulism [None]
  - Peripheral swelling [None]
  - Pruritus generalised [None]

NARRATIVE: CASE EVENT DATE: 20141203
